FAERS Safety Report 18603377 (Version 1)
Quarter: 2020Q4

REPORT INFORMATION
  Report Type: Spontaneous
  Country: CN (occurrence: CN)
  Receive Date: 20201210
  Receipt Date: 20201210
  Transmission Date: 20210114
  Serious: Yes (Other)
  Sender: FDA-Public Use
  Company Number: CN-BAXTER-2020BAX024780

PATIENT
  Age: 57 Year
  Sex: Male
  Weight: 71 kg

DRUGS (30)
  1. 20% MANNITOL INJECTION [Suspect]
     Active Substance: MANNITOL
     Indication: DIURETIC THERAPY
     Route: 041
     Dates: start: 20201106, end: 20201123
  2. KAIFEN [FLURBIPROFEN AXETIL] [Suspect]
     Active Substance: FLURBIPROFEN AXETIL
     Dosage: DOSE RE-INTRODUCED
     Route: 041
  3. METHYCOBAL [Suspect]
     Active Substance: METHYLCOBALAMIN
     Dosage: DOSE RE-INTRODUCED
     Route: 042
  4. SODIUM CHLORIDE. [Suspect]
     Active Substance: SODIUM CHLORIDE
     Indication: MEDICATION DILUTION
     Dosage: 0.9% NS250ML + VITAMIN C INJECTION 2G + VITAMIN B6 INJECTION
     Route: 041
     Dates: start: 20201106, end: 20201110
  5. SODIUM CHLORIDE. [Suspect]
     Active Substance: SODIUM CHLORIDE
     Dosage: 0.9% NS100ML + CEFTRIAXONE SODIUM FOR INJECTION
     Route: 041
     Dates: start: 20201106, end: 20201114
  6. SODIUM CHLORIDE. [Suspect]
     Active Substance: SODIUM CHLORIDE
     Dosage: 0.9% NS250ML + VITAMIN C INJECTION 2G + VITAMIN B6 INJECTION, DOSE RE-INTRODUCED
     Route: 041
  7. SODIUM CHLORIDE. [Suspect]
     Active Substance: SODIUM CHLORIDE
     Dosage: 0.9% NS 250ML + GUGUA EXTRACTIVE INJECTION, DOSE RE-INTRODUCED
     Route: 041
  8. SODIUM CHLORIDE. [Suspect]
     Active Substance: SODIUM CHLORIDE
     Dosage: 0.9% NS100ML + CEFTRIAXONE SODIUM FOR INJECTION, DOSE RE-INTRODUCED
     Route: 041
  9. DUPHALAC [Suspect]
     Active Substance: LACTULOSE
     Dosage: DOSE RE-INTRODUCED
     Route: 048
  10. VITAMIN C [Suspect]
     Active Substance: ASCORBIC ACID
     Indication: FLUID REPLACEMENT
     Route: 041
     Dates: start: 20201106, end: 20201110
  11. ACETAMINOPHEN. [Suspect]
     Active Substance: ACETAMINOPHEN
     Indication: ANALGESIC THERAPY
     Dosage: TABLETS
     Route: 048
     Dates: start: 20201122
  12. 20% MANNITOL INJECTION [Suspect]
     Active Substance: MANNITOL
     Indication: SWELLING
     Dosage: DOSE RE-INTRODUCED
     Route: 041
  13. ROCEPHIN [Suspect]
     Active Substance: CEFTRIAXONE SODIUM
     Indication: ANTI-INFECTIVE THERAPY
     Route: 041
     Dates: start: 20201106, end: 20201114
  14. DEXAMETHASONE SODIUM PHOSPHATE. [Suspect]
     Active Substance: DEXAMETHASONE SODIUM PHOSPHATE
     Dosage: DOSE RE-INTRODUCED
     Route: 041
  15. DIFENE [Suspect]
     Active Substance: DICLOFENAC SODIUM
     Indication: ANALGESIC THERAPY
     Dosage: DOSAGE FORM: DOUBLE-RELEASE ENTERIC-COATED CAPSULES
     Route: 048
     Dates: start: 20201111, end: 20201123
  16. METHYCOBAL [Suspect]
     Active Substance: METHYLCOBALAMIN
     Indication: PROPHYLAXIS
     Route: 042
     Dates: start: 20201110, end: 20201123
  17. SODIUM CHLORIDE. [Suspect]
     Active Substance: SODIUM CHLORIDE
     Dosage: 0.9% NS 250ML + GUGUA EXTRACTIVE INJECTION
     Route: 041
     Dates: start: 20201108, end: 20201120
  18. SODIUM CHLORIDE. [Suspect]
     Active Substance: SODIUM CHLORIDE
     Dosage: 0.9% NS 100ML + DEXAMETHASONE SODIUM PHOSPHATE INJECTION, DOSE RE-INTRODUCED
     Route: 041
  19. SODIUM CHLORIDE. [Suspect]
     Active Substance: SODIUM CHLORIDE
     Dosage: 0.9% NS100ML + FLURBIPROFEN AXETIL INJECTION
     Route: 041
     Dates: start: 20201106, end: 20201111
  20. SODIUM CHLORIDE. [Suspect]
     Active Substance: SODIUM CHLORIDE
     Dosage: 0.9% NS 100ML + DEXAMETHASONE SODIUM PHOSPHATE INJECTION
     Route: 041
     Dates: start: 20201110, end: 20201114
  21. VITAMIN B6 [Suspect]
     Active Substance: PYRIDOXINE HYDROCHLORIDE
     Dosage: DOSE RE-INTRODUCED
     Route: 041
  22. DUPHALAC [Suspect]
     Active Substance: LACTULOSE
     Indication: CONSTIPATION
     Dosage: 1 BOX, AVAILABLE FOR 3 DAYS
     Route: 048
     Dates: start: 20201110, end: 20201112
  23. SODIUM CHLORIDE. [Suspect]
     Active Substance: SODIUM CHLORIDE
     Dosage: 0.9% NS100ML + FLURBIPROFEN AXETIL INJECTION, DOSE RE-INTRODUCED
     Route: 041
  24. VITAMIN B6 [Suspect]
     Active Substance: PYRIDOXINE HYDROCHLORIDE
     Indication: FLUID REPLACEMENT
     Route: 041
     Dates: start: 20201106, end: 20201110
  25. VITAMIN C [Suspect]
     Active Substance: ASCORBIC ACID
     Dosage: DOSE RE-INTRODUCED
     Route: 041
  26. ACETAMINOPHEN. [Suspect]
     Active Substance: ACETAMINOPHEN
     Dosage: TABLETS
     Route: 048
     Dates: start: 20201123
  27. KAIFEN [FLURBIPROFEN AXETIL] [Suspect]
     Active Substance: FLURBIPROFEN AXETIL
     Indication: ANALGESIC THERAPY
     Route: 041
     Dates: start: 20201106, end: 20201111
  28. ROCEPHIN [Suspect]
     Active Substance: CEFTRIAXONE SODIUM
     Dosage: DOSE RE-INTRODUCED
     Route: 041
  29. DEXAMETHASONE SODIUM PHOSPHATE. [Suspect]
     Active Substance: DEXAMETHASONE SODIUM PHOSPHATE
     Indication: HORMONE THERAPY
     Route: 041
     Dates: start: 20201110, end: 20201114
  30. DIFENE [Suspect]
     Active Substance: DICLOFENAC SODIUM
     Dosage: DOSE RE-INTRODUCED
     Route: 048

REACTIONS (1)
  - Hepatic function abnormal [Recovering/Resolving]

NARRATIVE: CASE EVENT DATE: 20201114
